FAERS Safety Report 7137262-6 (Version None)
Quarter: 2010Q4

REPORT INFORMATION
  Report Type: 
  Country: None (occurrence: None)
  Receive Date: 20101206
  Receipt Date: 20101122
  Transmission Date: 20110411
  Serious: Yes (Hospitalization)
  Sender: FDA-Public Use
  Company Number: PHHY2009AU25279

PATIENT
  Sex: Male

DRUGS (4)
  1. CLOZARIL [Suspect]
     Dosage: 900 MG /DAILY
     Dates: start: 20040714
  2. CLOZARIL [Suspect]
     Dosage: 900 MG DAILY
     Dates: start: 20070101
  3. CLOZARIL [Suspect]
     Dosage: 12.5 MG,DAILY
     Dates: start: 20090618
  4. CLOZARIL [Suspect]
     Dosage: 50 MG DAILY
     Dates: start: 20090625

REACTIONS (2)
  - PSYCHIATRIC SYMPTOM [None]
  - THERAPY CESSATION [None]
